FAERS Safety Report 5707180-6 (Version None)
Quarter: 2008Q2

REPORT INFORMATION
  Report Type: 
  Country: None (occurrence: None)
  Receive Date: 20080416
  Receipt Date: 20080414
  Transmission Date: 20081010
  Serious: Yes (Other)
  Sender: FDA-Public Use
  Company Number: US-MERCK-0804USA01365

PATIENT
  Age: 16 Year
  Sex: Female

DRUGS (4)
  1. SINGULAIR [Suspect]
     Indication: ASTHMA
     Route: 048
     Dates: start: 20060401, end: 20080403
  2. PROAIR HFA [Concomitant]
     Route: 065
  3. ADVAIR HFA [Concomitant]
     Route: 065
  4. METFORMIN [Concomitant]
     Route: 065

REACTIONS (1)
  - SUICIDAL IDEATION [None]
